FAERS Safety Report 19942448 (Version 1)
Quarter: 2021Q4

REPORT INFORMATION
  Report Type: Spontaneous
  Country: US (occurrence: US)
  Receive Date: 20211008
  Receipt Date: 20211008
  Transmission Date: 20220303
  Serious: Yes (Hospitalization)
  Sender: FDA-Public Use
  Company Number: None

PATIENT
  Age: 77 Year
  Sex: Male

DRUGS (11)
  1. CASIRIVIMAB\IMDEVIMAB [Suspect]
     Active Substance: CASIRIVIMAB\IMDEVIMAB
     Indication: COVID-19
     Dosage: ?          OTHER ROUTE:IV
     Dates: start: 20210922, end: 20210922
  2. ASPIRIN [Concomitant]
     Active Substance: ASPIRIN
  3. ATORVASTATIN [Concomitant]
     Active Substance: ATORVASTATIN
  4. DULOXETINE [Concomitant]
     Active Substance: DULOXETINE
  5. METFORMIN [Concomitant]
     Active Substance: METFORMIN HYDROCHLORIDE
  6. METOPROLOL [Concomitant]
     Active Substance: METOPROLOL
  7. TRAMADOL [Concomitant]
     Active Substance: TRAMADOL
  8. MINERALS\VITAMINS [Concomitant]
     Active Substance: MINERALS\VITAMINS
  9. TAMSULOSIN [Concomitant]
     Active Substance: TAMSULOSIN
  10. ACETAMINOPHEN [Concomitant]
     Active Substance: ACETAMINOPHEN
  11. CHOLECALCIFEROL [Concomitant]
     Active Substance: CHOLECALCIFEROL

REACTIONS (16)
  - Infusion related reaction [None]
  - Dyspnoea [None]
  - Hyperhidrosis [None]
  - Seizure [None]
  - Dyspnoea [None]
  - Tachypnoea [None]
  - Mental status changes [None]
  - Confusional state [None]
  - Nausea [None]
  - Blood pressure increased [None]
  - Generalised tonic-clonic seizure [None]
  - Postictal state [None]
  - Hyponatraemia [None]
  - COVID-19 pneumonia [None]
  - Somnolence [None]
  - Encephalopathy [None]

NARRATIVE: CASE EVENT DATE: 20210922
